FAERS Safety Report 24816472 (Version 6)
Quarter: 2025Q3

REPORT INFORMATION
  Report Type: Spontaneous
  Country: US (occurrence: US)
  Receive Date: 20250107
  Receipt Date: 20250910
  Transmission Date: 20251021
  Serious: No
  Sender: ELI LILLY AND COMPANY
  Company Number: US-ELI_LILLY_AND_COMPANY-US202501002146

PATIENT
  Age: 49 Year
  Sex: Female

DRUGS (4)
  1. VERZENIO [Suspect]
     Active Substance: ABEMACICLIB
     Indication: Breast cancer
     Route: 048
     Dates: start: 20241201, end: 20241207
  2. VERZENIO [Suspect]
     Active Substance: ABEMACICLIB
     Route: 048
     Dates: start: 20241220, end: 20241231
  3. VERZENIO [Suspect]
     Active Substance: ABEMACICLIB
     Route: 048
     Dates: start: 20250111
  4. VERZENIO [Suspect]
     Active Substance: ABEMACICLIB
     Route: 048

REACTIONS (11)
  - Vertigo [Recovered/Resolved]
  - Hunger [Recovered/Resolved]
  - Dizziness [Not Recovered/Not Resolved]
  - Headache [Not Recovered/Not Resolved]
  - Diarrhoea [Recovering/Resolving]
  - Vomiting [Recovering/Resolving]
  - Diarrhoea [Recovered/Resolved]
  - Vomiting [Recovered/Resolved]
  - Fatigue [Recovered/Resolved]
  - Nausea [Not Recovered/Not Resolved]
  - Diarrhoea [Not Recovered/Not Resolved]

NARRATIVE: CASE EVENT DATE: 20241201
